FAERS Safety Report 10027458 (Version 4)
Quarter: 2014Q2

REPORT INFORMATION
  Report Type: Spontaneous
  Country: US (occurrence: US)
  Receive Date: 20140321
  Receipt Date: 20140513
  Transmission Date: 20141212
  Serious: No
  Sender: FDA-Public Use
  Company Number: US-PFIZER INC-2013307603

PATIENT
  Age: 82 Year
  Sex: Female
  Weight: 64.4 kg

DRUGS (16)
  1. LYRICA [Suspect]
     Indication: HYPOAESTHESIA
     Dosage: 100 MG, 3X/DAY
     Route: 048
     Dates: start: 2006
  2. LYRICA [Suspect]
     Indication: NEUROPATHY PERIPHERAL
     Dosage: 100 MG, 4X/DAY
     Route: 048
     Dates: start: 201309
  3. LYRICA [Suspect]
     Indication: ANKLE OPERATION
     Dosage: 100 MG, 3X/DAY
     Route: 048
     Dates: end: 201403
  4. TYLENOL [Concomitant]
     Indication: PAIN
     Dosage: 1000MG (2 X 500MG) IN MORNING AND 1500MG (3 X 500MG) AT NIGHT
  5. TYLENOL [Concomitant]
     Dosage: 500 MG, AS NEEDED
  6. ASPIRIN [Concomitant]
     Indication: ANTICOAGULANT THERAPY
     Dosage: 625 MG, DAILY
  7. ASPIRIN [Concomitant]
     Dosage: 325 MG, 1X/DAY
  8. LISINOPRIL [Concomitant]
     Dosage: 20 MG, DAILY
  9. LABETALOL [Concomitant]
     Dosage: 300 MG, 2X/DAY
  10. LABETALOL [Concomitant]
     Dosage: 200 MG, 1X/DAY
  11. DIGOXIN [Concomitant]
     Indication: CARDIAC DISORDER
     Dosage: 125 UG, DAILY
  12. TRAZODONE [Concomitant]
     Dosage: 50 MG, DAILY
  13. METOPROLOL TARTRATE [Concomitant]
     Dosage: 50 MG, 2X/DAY
  14. OMEGA-3 [Concomitant]
     Dosage: UNK, 2X/DAY
  15. TRILIPIX [Concomitant]
     Dosage: 135 MG, 1X/DAY
  16. METOPROLOL [Concomitant]
     Dosage: 50 MG, 1X/DAY

REACTIONS (5)
  - Intentional product misuse [Unknown]
  - Drug withdrawal syndrome [Recovered/Resolved]
  - Thinking abnormal [Recovered/Resolved]
  - Feeling abnormal [Recovered/Resolved]
  - Malaise [Recovered/Resolved]
